FAERS Safety Report 8178386-4 (Version None)
Quarter: 2012Q1

REPORT INFORMATION
  Report Type: 
  Country: None (occurrence: None)
  Receive Date: 20120301
  Receipt Date: 20120222
  Transmission Date: 20120608
  Serious: Yes (Other)
  Sender: FDA-Public Use
  Company Number: US-BAYER-2012-017969

PATIENT
  Age: 64 Year
  Sex: Male
  Weight: 36 kg

DRUGS (4)
  1. HIGH CHOLESTEROL MEDICATION [Concomitant]
  2. ANTIHYPERTENSIVES [Concomitant]
  3. ASPIRIN [Suspect]
     Indication: DIVERTICULITIS
     Dosage: 2 DF, ONCE
     Route: 048
     Dates: start: 20111201, end: 20111201
  4. JOINT JUICE [Concomitant]

REACTIONS (2)
  - FEELING ABNORMAL [None]
  - FEAR [None]
